FAERS Safety Report 7297779-0 (Version None)
Quarter: 2011Q1

REPORT INFORMATION
  Report Type: 
  Country: None (occurrence: None)
  Receive Date: 20110217
  Receipt Date: 20110215
  Transmission Date: 20110831
  Serious: Yes (Hospitalization, Other)
  Sender: FDA-Public Use
  Company Number: US-SOLVAY-00210007674

PATIENT
  Age: 60 Year
  Sex: Male
  Weight: 106.81 kg

DRUGS (2)
  1. ANDROGEL [Suspect]
     Indication: BLOOD TESTOSTERONE DECREASED
     Dosage: DAILY DOSE: UNKNOWN, 2.5GRAMS EVERY OTHER DAY
     Route: 062
     Dates: start: 20000101, end: 20090101
  2. ANDROGEL [Suspect]
     Dosage: DAILY DOSE: 5 GRAM(S)
     Route: 062
     Dates: start: 20090101

REACTIONS (4)
  - PITUITARY TUMOUR [None]
  - DRUG INEFFECTIVE [None]
  - GYNAECOMASTIA [None]
  - BLOOD PROLACTIN INCREASED [None]
